FAERS Safety Report 9390299 (Version 1)
Quarter: 2013Q3

REPORT INFORMATION
  Report Type: Spontaneous
  Country: IN (occurrence: IN)
  Receive Date: 20130709
  Receipt Date: 20130709
  Transmission Date: 20140515
  Serious: Yes (Disabling)
  Sender: FDA-Public Use
  Company Number: IN-RANBAXY-2013R1-70989

PATIENT
  Age: 30 Year
  Sex: Male

DRUGS (1)
  1. PENTAZOCINE [Suspect]
     Indication: URINARY TRACT INFECTION
     Dosage: UNK
     Route: 030

REACTIONS (2)
  - Drug dependence [Unknown]
  - Fibromyalgia [Recovering/Resolving]
